FAERS Safety Report 5901294-3 (Version None)
Quarter: 2008Q3

REPORT INFORMATION
  Report Type: 
  Country: None (occurrence: None)
  Receive Date: 20080929
  Receipt Date: 20080828
  Transmission Date: 20090109
  Serious: Yes (Other)
  Sender: FDA-Public Use
  Company Number: US-BRISTOL-MYERS SQUIBB COMPANY-14318430

PATIENT
  Age: 55 Year
  Sex: Female

DRUGS (2)
  1. ORENCIA [Suspect]
     Indication: RHEUMATOID ARTHRITIS
     Dosage: LAST INFUSION WAS GIVEN ON 19-AUG-2008.
     Dates: start: 20071101
  2. ARAVA [Concomitant]

REACTIONS (1)
  - RASH MACULO-PAPULAR [None]
